FAERS Safety Report 6838941-8 (Version None)
Quarter: 2010Q3

REPORT INFORMATION
  Report Type: 
  Country: None (occurrence: None)
  Receive Date: 20100713
  Receipt Date: 20070911
  Transmission Date: 20110219
  Serious: Yes (Other)
  Sender: FDA-Public Use
  Company Number: US-PFIZER INC-2007035064

PATIENT
  Sex: Male
  Weight: 78.6 kg

DRUGS (2)
  1. CHANTIX [Suspect]
     Indication: SMOKING CESSATION THERAPY
     Dates: start: 20070301, end: 20070501
  2. PROTONIX [Concomitant]

REACTIONS (4)
  - BACK PAIN [None]
  - BLISTER [None]
  - PRURITUS [None]
  - RASH GENERALISED [None]
